FAERS Safety Report 14819999 (Version 5)
Quarter: 2018Q4

REPORT INFORMATION
  Report Type: Spontaneous
  Country: TW (occurrence: TW)
  Receive Date: 20180427
  Receipt Date: 20181102
  Transmission Date: 20190204
  Serious: Yes (Other)
  Sender: FDA-Public Use
  Company Number: TW-AMGEN-TWNSP2018056422

PATIENT
  Age: 24 Year
  Sex: Male

DRUGS (2)
  1. ENBREL [Suspect]
     Active Substance: ETANERCEPT
     Dosage: 25 MG, ONE PRE-FILLED SYRINGE PER TWO WEEKS
     Route: 058
     Dates: start: 20180727, end: 2018
  2. ENBREL [Suspect]
     Active Substance: ETANERCEPT
     Indication: ANKYLOSING SPONDYLITIS
     Dosage: 25 MG, 2 TIMES/WK
     Route: 058
     Dates: start: 20170224, end: 20180420

REACTIONS (2)
  - Product use issue [Unknown]
  - Abdominal neoplasm [Not Recovered/Not Resolved]

NARRATIVE: CASE EVENT DATE: 20180727
